FAERS Safety Report 23992415 (Version 1)
Quarter: 2024Q2

REPORT INFORMATION
  Report Type: Report from Study
  Country: US (occurrence: US)
  Receive Date: 20240620
  Receipt Date: 20240620
  Transmission Date: 20240716
  Serious: Yes (Hospitalization)
  Sender: FDA-Public Use
  Company Number: US-JNJFOC-20240641607

PATIENT
  Age: 58 Year
  Sex: Male

DRUGS (10)
  1. SPRAVATO [Suspect]
     Active Substance: ESKETAMINE
     Indication: Depression
     Dosage: 28 MG TOTAL 3 DOSES
     Dates: start: 20200930, end: 20201008
  2. SPRAVATO [Suspect]
     Active Substance: ESKETAMINE
     Dosage: 42 MG TOTAL 1 DOSE
     Dates: start: 20201012, end: 20201012
  3. SPRAVATO [Suspect]
     Active Substance: ESKETAMINE
     Dosage: 14 MG TOTAL 5 DOSES
     Dates: start: 20201027, end: 20201120
  4. SPRAVATO [Suspect]
     Active Substance: ESKETAMINE
     Dosage: 28 MG TOTAL 10 DOSES
     Dates: start: 20201124, end: 20210112
  5. SPRAVATO [Suspect]
     Active Substance: ESKETAMINE
     Dosage: 84 MG TOTAL 1 DOSE
     Dates: start: 20240115, end: 20240115
  6. SPRAVATO [Suspect]
     Active Substance: ESKETAMINE
     Dosage: 28 MG TOTAL 7 DOSES
     Dates: start: 20210119, end: 20210212
  7. SPRAVATO [Suspect]
     Active Substance: ESKETAMINE
     Dosage: 56 MG TOTAL 2 DOSES
     Dates: start: 20210915, end: 20210922
  8. SPRAVATO [Suspect]
     Active Substance: ESKETAMINE
     Dosage: 84 MG TOTAL 1 DOSES
     Dates: start: 20210929, end: 20210929
  9. SPRAVATO [Suspect]
     Active Substance: ESKETAMINE
     Dosage: 56 MG TOTAL 2 DOSES
     Dates: start: 20210913, end: 20240319
  10. SPRAVATO [Suspect]
     Active Substance: ESKETAMINE
     Dosage: 84 MG TOTAL 5 DOSES
     Dates: start: 20240321, end: 20240404

REACTIONS (1)
  - Hospitalisation [Unknown]
